FAERS Safety Report 4968230-8 (Version None)
Quarter: 2006Q1

REPORT INFORMATION
  Report Type: 
  Country: None (occurrence: None)
  Receive Date: 20060201
  Receipt Date: 20051226
  Transmission Date: 20060701
  Serious: No
  Sender: FDA-Public Use
  Company Number: 2005PV006235

PATIENT
  Age: 42 Year
  Sex: Male
  Weight: 136.0791 kg

DRUGS (1)
  1. BYETTA [Suspect]
     Indication: DIABETES MELLITUS NON-INSULIN-DEPENDENT
     Dosage: 5 MCG; BID; SC
     Route: 058
     Dates: start: 20051012

REACTIONS (2)
  - INJECTION SITE BRUISING [None]
  - WEIGHT DECREASED [None]
